FAERS Safety Report 4421649-6 (Version None)
Quarter: 2004Q3

REPORT INFORMATION
  Report Type: 
  Country: None (occurrence: None)
  Receive Date: 20040804
  Receipt Date: 20040720
  Transmission Date: 20050211
  Serious: Yes (Death)
  Sender: FDA-Public Use
  Company Number: USA-2004-0016094

PATIENT
  Age: 54 Year
  Sex: Male

DRUGS (2)
  1. MORPHINE SULFATE [Suspect]
  2. COCAINE (COCAINE) [Suspect]

REACTIONS (5)
  - ACCIDENT [None]
  - ACCIDENTAL OVERDOSE [None]
  - ATHEROSCLEROSIS [None]
  - DRUG TOXICITY [None]
  - POLYSUBSTANCE ABUSE [None]
